FAERS Safety Report 10217811 (Version 1)
Quarter: 2014Q2

REPORT INFORMATION
  Report Type: Spontaneous
  Country: US (occurrence: US)
  Receive Date: 20140604
  Receipt Date: 20140604
  Transmission Date: 20141212
  Serious: Yes (Hospitalization)
  Sender: FDA-Public Use
  Company Number: US-ABBVIE-14P-163-1241912-00

PATIENT
  Age: 44 Year
  Sex: Male
  Weight: 91.25 kg

DRUGS (6)
  1. ANDROGEL 1.62% [Suspect]
     Indication: BLOOD TESTOSTERONE DECREASED
     Dosage: 3 PUMPS DAILY
     Route: 061
     Dates: start: 201311, end: 201404
  2. TESTOSTERONE [Suspect]
     Indication: BLOOD TESTOSTERONE DECREASED
     Route: 030
     Dates: start: 201404, end: 201404
  3. RISPERDAL [Concomitant]
     Indication: BIPOLAR DISORDER
  4. RISPERDAL [Concomitant]
     Indication: ANXIETY DISORDER
  5. BUSPAR [Concomitant]
     Indication: BIPOLAR DISORDER
  6. BUSPAR [Concomitant]
     Indication: ANXIETY DISORDER

REACTIONS (11)
  - Chest pain [Recovered/Resolved]
  - Heart rate irregular [Recovered/Resolved]
  - Chest pain [Unknown]
  - Heart rate irregular [Unknown]
  - Chest discomfort [Recovered/Resolved]
  - Anxiety [Recovered/Resolved]
  - Malaise [Recovered/Resolved]
  - Chest discomfort [Unknown]
  - Anxiety [Unknown]
  - Malaise [Unknown]
  - Blood testosterone increased [Unknown]
